FAERS Safety Report 7926293-1 (Version None)
Quarter: 2011Q4

REPORT INFORMATION
  Report Type: 
  Country: None (occurrence: None)
  Receive Date: 20111118
  Receipt Date: 20111114
  Transmission Date: 20120403
  Serious: Yes (Other)
  Sender: FDA-Public Use
  Company Number: US-BIOGENIDEC-2011BI043310

PATIENT
  Age: 64 Year
  Sex: Female

DRUGS (1)
  1. AVONEX [Suspect]
     Indication: MULTIPLE SCLEROSIS
     Route: 030
     Dates: start: 19980515

REACTIONS (10)
  - BREAST CANCER [None]
  - VISUAL IMPAIRMENT [None]
  - JOINT INJURY [None]
  - AMNESIA [None]
  - FALL [None]
  - NAUSEA [None]
  - RIB FRACTURE [None]
  - INJECTION SITE DERMATITIS [None]
  - ARTHRITIS [None]
  - DEPRESSED MOOD [None]
